FAERS Safety Report 4625227-5 (Version None)
Quarter: 2005Q2

REPORT INFORMATION
  Report Type: 
  Country: None (occurrence: None)
  Receive Date: 20050401
  Receipt Date: 20050304
  Transmission Date: 20051028
  Serious: Yes (Hospitalization)
  Sender: FDA-Public Use
  Company Number: JP-ROCHE-398254

PATIENT
  Age: 5 Year
  Sex: Male

DRUGS (4)
  1. TAMIFLU [Suspect]
     Route: 048
     Dates: start: 20050227, end: 20050227
  2. PROCATEROL HCL [Concomitant]
     Dosage: DRUG NAME REPORTED AS LENBRISS
     Route: 048
     Dates: start: 20050227, end: 20050227
  3. KETOTIFEN [Concomitant]
     Dosage: DRUG NAME REPORTED AS MELLABON
     Route: 048
     Dates: start: 20050227, end: 20050227
  4. CARBOCYSTEINE [Concomitant]
     Dosage: DRUG NAME REPORTED AS C-CYSTEN
     Route: 048
     Dates: start: 20050227, end: 20050227

REACTIONS (2)
  - DEPRESSED LEVEL OF CONSCIOUSNESS [None]
  - VOMITING [None]
